FAERS Safety Report 8132309-2 (Version None)
Quarter: 2012Q1

REPORT INFORMATION
  Report Type: 
  Country: None (occurrence: None)
  Receive Date: 20120213
  Receipt Date: 20120208
  Transmission Date: 20120608
  Serious: Yes (Death, Other)
  Sender: FDA-Public Use
  Company Number: PE-PFIZER INC-2012036077

PATIENT
  Age: 80 Year
  Sex: Female

DRUGS (1)
  1. LYRICA [Suspect]

REACTIONS (2)
  - DEATH [None]
  - OEDEMA PERIPHERAL [None]
